FAERS Safety Report 5207946-5 (Version None)
Quarter: 2007Q1

REPORT INFORMATION
  Report Type: 
  Country: None (occurrence: None)
  Receive Date: 20070115
  Receipt Date: 20070110
  Transmission Date: 20070707
  Serious: Yes (Hospitalization)
  Sender: FDA-Public Use
  Company Number: FR-ELI_LILLY_AND_COMPANY-FR200701001724

PATIENT
  Age: 58 Year
  Sex: Female

DRUGS (4)
  1. ZYPREXA [Suspect]
     Indication: PSYCHOTIC DISORDER
     Dosage: 1 D/F, DAILY (1/D)
     Route: 048
     Dates: start: 20010615
  2. FLUOXETINE HYDROCHLORIDE [Suspect]
     Dosage: 2 D/F, DAILY (1/D)
     Route: 048
     Dates: start: 20010615
  3. REVIA [Concomitant]
     Dosage: 1 D/F, DAILY (1/D)
     Route: 048
     Dates: start: 20010615
  4. DEPAMIDE [Concomitant]
     Dosage: 2 D/F, 3/D
     Route: 048
     Dates: start: 20010615

REACTIONS (3)
  - FALL [None]
  - HYPONATRAEMIA [None]
  - VERTIGO [None]
